FAERS Safety Report 24186396 (Version 1)
Quarter: 2024Q3

REPORT INFORMATION
  Report Type: Report from Study
  Country: CA (occurrence: None)
  Receive Date: 20240808
  Receipt Date: 20240808
  Transmission Date: 20241017
  Serious: Yes (Other)
  Sender: ASTRAZENECA
  Company Number: 2022A334029

PATIENT
  Sex: Male

DRUGS (8)
  1. FASENRA [Suspect]
     Active Substance: BENRALIZUMAB
     Indication: Asthma
     Route: 058
     Dates: start: 20201016
  2. DILANTIN [Concomitant]
     Active Substance: PHENYTOIN
  3. SPIRIVA [Concomitant]
     Active Substance: TIOTROPIUM BROMIDE MONOHYDRATE
     Dosage: ID
  4. FLUTICASONE FUROATE [Concomitant]
     Active Substance: FLUTICASONE FUROATE
     Dosage: ID
  5. VENTOLIN [Concomitant]
     Active Substance: ALBUTEROL SULFATE
     Dosage: 100MCG 2 INH BID PLUS PRN
  6. ADVAIR HFA [Concomitant]
     Active Substance: FLUTICASONE PROPIONATE\SALMETEROL XINAFOATE
     Dosage: INH
  7. PREDNISONE [Concomitant]
     Active Substance: PREDNISONE
  8. NUCALA [Concomitant]
     Active Substance: MEPOLIZUMAB

REACTIONS (1)
  - Ear neoplasm [Unknown]
